FAERS Safety Report 14903409 (Version 1)
Quarter: 2018Q2

REPORT INFORMATION
  Report Type: Spontaneous
  Country: ES (occurrence: ES)
  Receive Date: 20180516
  Receipt Date: 20180516
  Transmission Date: 20180711
  Serious: Yes (Life-Threatening, Hospitalization)
  Sender: FDA-Public Use
  Company Number: ES-MYLANLABS-2018M1031896

PATIENT
  Sex: Male
  Weight: 85 kg

DRUGS (4)
  1. YURELAX 10 MG C?PSULAS DURAS [Suspect]
     Active Substance: CYCLOBENZAPRINE HYDROCHLORIDE
     Indication: BACK PAIN
     Dosage: 1 CADA  12 HORAS
     Route: 048
     Dates: start: 20180217, end: 20180218
  2. TARGIN [Suspect]
     Active Substance: NALOXONE HYDROCHLORIDE\OXYCODONE HYDROCHLORIDE
     Indication: BACK PAIN
     Dosage: 1 CADA 8 HORAS
     Route: 048
     Dates: start: 20180217, end: 20180218
  3. PANTECTA CONTROL [Concomitant]
     Indication: GASTRIC ULCER
     Dosage: 1 AL DIA
     Route: 048
     Dates: start: 20100113
  4. LYRICA [Suspect]
     Active Substance: PREGABALIN
     Indication: BACK PAIN
     Dosage: 1 CADA 8 HORAS
     Route: 048
     Dates: start: 20180217, end: 20180218

REACTIONS (2)
  - Musculoskeletal stiffness [Unknown]
  - Aphasia [Recovered/Resolved]

NARRATIVE: CASE EVENT DATE: 20180217
